FAERS Safety Report 9012303 (Version 2)
Quarter: 2013Q1

REPORT INFORMATION
  Report Type: Spontaneous
  Country: US (occurrence: None)
  Receive Date: 20121231
  Receipt Date: 20130211
  Transmission Date: 20140127
  Serious: No
  Sender: FDA-Public Use
  Company Number: 2012-00206

PATIENT
  Age: 46 Year
  Sex: Male
  Weight: 90.72 kg

DRUGS (2)
  1. ZICAM [Suspect]
     Indication: NASOPHARYNGITIS
     Dosage: 1 RAPIDMELT EVERY 3 HOURS
     Dates: start: 20121219, end: 20121220
  2. EMERGEN-C [Concomitant]

REACTIONS (2)
  - Anosmia [None]
  - Nasal congestion [None]
